FAERS Safety Report 15074809 (Version 1)
Quarter: 2018Q2

REPORT INFORMATION
  Report Type: Spontaneous
  Country: US (occurrence: US)
  Receive Date: 20180627
  Receipt Date: 20180627
  Transmission Date: 20180711
  Serious: No
  Sender: FDA-Public Use
  Company Number: US-SAOL THERAPEUTICS-2017SAO01286

PATIENT
  Age: 29 Year
  Sex: Male
  Weight: 53.5 kg

DRUGS (2)
  1. BACLOFEN. [Suspect]
     Active Substance: BACLOFEN
     Indication: MUSCLE SPASTICITY
     Dosage: 108.1 ?G, \DAY
     Route: 037
     Dates: end: 20170731
  2. BACLOFEN. [Suspect]
     Active Substance: BACLOFEN
     Dosage: 112.3 ?G, \DAY
     Route: 037
     Dates: start: 20170731

REACTIONS (2)
  - Catheter site pain [Unknown]
  - Medical device site discomfort [Unknown]

NARRATIVE: CASE EVENT DATE: 201707
